FAERS Safety Report 6471412-X (Version None)
Quarter: 2009Q4

REPORT INFORMATION
  Report Type: 
  Country: None (occurrence: None)
  Receive Date: 20091203
  Receipt Date: 20080530
  Transmission Date: 20100525
  Serious: Yes (Life-Threatening, Other)
  Sender: FDA-Public Use
  Company Number: US-ELI_LILLY_AND_COMPANY-US200802004490

PATIENT
  Sex: Female
  Weight: 65.306 kg

DRUGS (13)
  1. FORTEO [Suspect]
     Indication: OSTEOPOROSIS
     Dosage: 20 UG, DAILY (1/D)
     Dates: start: 20071128, end: 20071218
  2. FORTEO [Suspect]
  3. ARANESP [Concomitant]
  4. OXYGEN [Concomitant]
     Indication: CHRONIC LYMPHOCYTIC LEUKAEMIA
  5. LIPITOR [Concomitant]
     Dosage: 10 MG, UNK
  6. LOTREL [Concomitant]
     Dosage: 5/10
  7. METFORMIN HCL [Concomitant]
  8. PRILOSEC [Concomitant]
     Dosage: 20 MG, UNK
  9. SYNTHROID [Concomitant]
     Dosage: 50 UG, UNK
  10. ASPIRIN [Concomitant]
     Dosage: 81 MG, UNK
  11. XALATAN [Concomitant]
  12. ALPHAGAN [Concomitant]
  13. ZANTAC [Concomitant]

REACTIONS (4)
  - FATIGUE [None]
  - FEELING ABNORMAL [None]
  - METABOLIC DISORDER [None]
  - RENAL FAILURE [None]
